FAERS Safety Report 4490795-3 (Version None)
Quarter: 2004Q4

REPORT INFORMATION
  Report Type: 
  Country: None (occurrence: None)
  Receive Date: 20041027
  Receipt Date: 20041015
  Transmission Date: 20050328
  Serious: Yes (Hospitalization)
  Sender: FDA-Public Use
  Company Number: 2004UW21581

PATIENT
  Age: 42 Year
  Sex: Male

DRUGS (2)
  1. SEROQUEL [Suspect]
     Dosage: 400 MG DAILY PO
     Route: 048
  2. SEROQUEL [Suspect]
     Dosage: 300 MG DAILY PO
     Route: 048

REACTIONS (3)
  - DYSARTHRIA [None]
  - POISONING [None]
  - SOMNOLENCE [None]
